FAERS Safety Report 5722196-1 (Version None)
Quarter: 2008Q2

REPORT INFORMATION
  Report Type: 
  Country: None (occurrence: None)
  Receive Date: 20080425
  Receipt Date: 20080416
  Transmission Date: 20081010
  Serious: Yes (Other)
  Sender: FDA-Public Use
  Company Number: 163-20785-08041275

PATIENT
  Age: 48 Year
  Sex: Female

DRUGS (3)
  1. THALOMID [Suspect]
     Indication: MULTIPLE MYELOMA
     Dosage: 50-100MG, 28 CAPS, ORAL; 50 MG, 28 CAPS, ORAL; 200 MG, 4 IN 1 D, ORAL
     Route: 048
     Dates: start: 20061101, end: 20060101
  2. THALOMID [Suspect]
     Indication: MULTIPLE MYELOMA
     Dosage: 50-100MG, 28 CAPS, ORAL; 50 MG, 28 CAPS, ORAL; 200 MG, 4 IN 1 D, ORAL
     Route: 048
     Dates: start: 20070101, end: 20070501
  3. THALOMID [Suspect]
     Indication: MULTIPLE MYELOMA
     Dosage: 50-100MG, 28 CAPS, ORAL; 50 MG, 28 CAPS, ORAL; 200 MG, 4 IN 1 D, ORAL
     Route: 048
     Dates: start: 20070701, end: 20080313

REACTIONS (1)
  - BLOOD HUMAN CHORIONIC GONADOTROPIN INCREASED [None]
